FAERS Safety Report 8444454-2 (Version None)
Quarter: 2012Q2

REPORT INFORMATION
  Report Type: 
  Country: None (occurrence: None)
  Receive Date: 20120611
  Receipt Date: 20120524
  Transmission Date: 20120825
  Serious: Yes (Hospitalization)
  Sender: FDA-Public Use
  Company Number: DSA_57648_2012

PATIENT
  Sex: Female

DRUGS (11)
  1. CONIEL [Concomitant]
  2. CRESTOR [Concomitant]
  3. NERISONA [Concomitant]
  4. PEGAPTANIB SODIUM (PEGAPTANIB SODIUM) [Suspect]
     Indication: DIABETIC RETINAL OEDEMA
     Dosage: 0.3 MG; FREQUENCY UNKNOWN
     Dates: start: 20110425, end: 20111005
  5. LATANOPROST [Concomitant]
  6. HIRUDOID [Concomitant]
  7. NOVORAPID [Concomitant]
  8. FAMOTIDINE [Concomitant]
  9. KALIMATE [Concomitant]
  10. AZOPT [Concomitant]
  11. MICARDIS [Concomitant]

REACTIONS (4)
  - DISEASE PROGRESSION [None]
  - CONDITION AGGRAVATED [None]
  - VISUAL FIELD DEFECT [None]
  - GLAUCOMA [None]
